FAERS Safety Report 23856583 (Version 7)
Quarter: 2024Q3

REPORT INFORMATION
  Report Type: Spontaneous
  Country: JP (occurrence: JP)
  Receive Date: 20240515
  Receipt Date: 20240924
  Transmission Date: 20241017
  Serious: Yes (Death, Other)
  Sender: GLAXOSMITHKLINE
  Company Number: JP-GSKJP-JP2024JPN059905AA

PATIENT

DRUGS (7)
  1. DAPRODUSTAT [Suspect]
     Active Substance: DAPRODUSTAT
     Indication: Nephrogenic anaemia
     Dosage: 4 MG, 1D
     Route: 048
     Dates: start: 20240122
  2. PRAVASTATIN SODIUM [Concomitant]
     Active Substance: PRAVASTATIN SODIUM
     Indication: Hypercholesterolaemia
     Dosage: 10 MG, 1D
     Route: 048
     Dates: start: 20080904
  3. RABEPRAZOLE SODIUM [Concomitant]
     Active Substance: RABEPRAZOLE SODIUM
     Indication: Hypertension
     Dosage: 10 MG, 1D
     Route: 048
     Dates: start: 20110405
  4. IMIDAPRIL HYDROCHLORIDE [Concomitant]
     Active Substance: IMIDAPRIL HYDROCHLORIDE
     Indication: Hypertension
     Dosage: 5 MG, 1D
     Route: 048
     Dates: start: 20100612
  5. BISOPROLOL FUMARATE [Concomitant]
     Active Substance: BISOPROLOL FUMARATE
     Indication: Atrial fibrillation
     Dosage: 1.25 MG, 1D
     Route: 048
     Dates: start: 20181105
  6. FEBUXOSTAT [Concomitant]
     Active Substance: FEBUXOSTAT
     Indication: Hyperuricaemia
     Dosage: 10 MG, 1D
     Route: 048
     Dates: start: 20200916
  7. WARFARIN [Concomitant]
     Active Substance: WARFARIN
     Dosage: 0.5 MG, 1D
     Route: 048
     Dates: start: 20090425

REACTIONS (8)
  - Cholangiocarcinoma [Fatal]
  - Metastases to liver [Fatal]
  - Lung neoplasm malignant [Fatal]
  - Adrenal gland cancer [Fatal]
  - Metastases to adrenals [Fatal]
  - Malignant neoplasm progression [Fatal]
  - Oedema peripheral [Fatal]
  - Venous thrombosis limb [Fatal]

NARRATIVE: CASE EVENT DATE: 20240416
